FAERS Safety Report 8184384-7 (Version None)
Quarter: 2012Q1

REPORT INFORMATION
  Report Type: 
  Country: None (occurrence: None)
  Receive Date: 20120305
  Receipt Date: 20120301
  Transmission Date: 20120608
  Serious: Yes (Hospitalization, Other)
  Sender: FDA-Public Use
  Company Number: JP-B.I. PHARMACEUTICALS,INC./RIDGEFIELD-2012-BP-03335NB

PATIENT
  Sex: Female
  Weight: 61 kg

DRUGS (11)
  1. VERAPAMIL HCL [Concomitant]
     Indication: ATRIAL FIBRILLATION
     Dosage: 120 MG
     Route: 048
  2. LANIRAPID [Concomitant]
     Indication: ATRIAL FIBRILLATION
     Dosage: 0.05 MG
     Route: 048
  3. ALDACTONE [Concomitant]
     Indication: CARDIAC FAILURE CHRONIC
     Dosage: 25 MG
     Route: 048
  4. LANSOPRAZOLE [Concomitant]
     Indication: GASTROOESOPHAGEAL REFLUX DISEASE
     Dosage: 15 MG
     Route: 048
  5. LASIX [Concomitant]
     Indication: CARDIAC FAILURE CHRONIC
     Dosage: 60 MG
     Route: 048
  6. PRADAXA [Suspect]
     Indication: ATRIAL FIBRILLATION
     Dosage: 220 MG
     Route: 048
     Dates: start: 20110726
  7. DIOVAN [Concomitant]
     Indication: HYPERTENSION
     Dosage: 40 MG
     Route: 048
  8. PRADAXA [Suspect]
     Dosage: 220 MG
     Route: 048
     Dates: start: 20120124
  9. URSO 250 [Concomitant]
     Indication: HEPATIC CIRRHOSIS
     Dosage: 600 MG
     Route: 048
  10. AMOBAN [Concomitant]
     Indication: INSOMNIA
     Dosage: 10 MG
     Route: 048
  11. PURSENNID [Concomitant]
     Indication: CONSTIPATION
     Dosage: 24 MG
     Route: 048

REACTIONS (2)
  - PARALYSIS FLACCID [None]
  - ALTERED STATE OF CONSCIOUSNESS [None]
